FAERS Safety Report 8102487-X (Version None)
Quarter: 2011Q4

REPORT INFORMATION
  Report Type: 
  Country: None (occurrence: None)
  Receive Date: 20111222
  Receipt Date: 20110906
  Transmission Date: 20120403
  Serious: Yes (Hospitalization)
  Sender: FDA-Public Use
  Company Number: UTC-010015

PATIENT
  Age: 62 Year
  Sex: Female
  Weight: 78.2 kg

DRUGS (3)
  1. DIURETICS (DIURETICS) [Concomitant]
  2. TYVASO [Suspect]
     Indication: PULMONARY ARTERIAL HYPERTENSION
     Dosage: 216 MCG (54 MCG, 4 IN 1 D), INHALATION
     Route: 055
     Dates: start: 20110303
  3. TRACLEER [Concomitant]

REACTIONS (2)
  - DRUG DOSE OMISSION [None]
  - PNEUMONIA [None]
